FAERS Safety Report 8297194-7 (Version None)
Quarter: 2012Q2

REPORT INFORMATION
  Report Type: 
  Country: None (occurrence: None)
  Receive Date: 20120419
  Receipt Date: 20120411
  Transmission Date: 20120825
  Serious: No
  Sender: FDA-Public Use
  Company Number: US-PFIZER INC-2012092630

PATIENT
  Sex: Female

DRUGS (3)
  1. MAXAIR [Concomitant]
     Dosage: UNK
  2. TWINJECT 0.3 [Suspect]
     Indication: ASTHMA
     Dosage: UNK
  3. EPIPEN [Suspect]
     Indication: ASTHMA
     Dosage: UNK

REACTIONS (2)
  - APPLICATION SITE HAEMATOMA [None]
  - EXPIRED DRUG ADMINISTERED [None]
